FAERS Safety Report 19297390 (Version 1)
Quarter: 2021Q2

REPORT INFORMATION
  Report Type: Report from Study
  Country: JP (occurrence: JP)
  Receive Date: 20210524
  Receipt Date: 20210524
  Transmission Date: 20210717
  Serious: Yes (Hospitalization, Other)
  Sender: FDA-Public Use
  Company Number: JP-CELLTRION INC.-2020JP023981

PATIENT

DRUGS (7)
  1. CT?P13 [Suspect]
     Active Substance: INFLIXIMAB-DYYB
     Dosage: 400 MG (WEIGHT 80 KG)
     Route: 041
     Dates: start: 20190124, end: 20190124
  2. CT?P13 [Suspect]
     Active Substance: INFLIXIMAB-DYYB
     Indication: COLITIS ULCERATIVE
     Dosage: 390 MG (WEIGHT 78 KG)
     Route: 041
     Dates: start: 20181122, end: 20181122
  3. CT?P13 [Suspect]
     Active Substance: INFLIXIMAB-DYYB
     Dosage: 400 MG (WEIGHT 80 KG)
     Route: 041
     Dates: start: 20190509, end: 20190509
  4. CT?P13 [Suspect]
     Active Substance: INFLIXIMAB-DYYB
     Dosage: 400 MG (WEIGHT 80 KG)
     Route: 041
     Dates: start: 20201119, end: 20201119
  5. MESALAZINE [Concomitant]
     Active Substance: MESALAMINE
     Dosage: 4000 MILLIGRAM/DAY
     Route: 048
  6. CT?P13 [Suspect]
     Active Substance: INFLIXIMAB-DYYB
     Dosage: 400 MG (WEIGHT 80 KG)
     Route: 041
     Dates: start: 20191031, end: 20191031
  7. CT?P13 [Suspect]
     Active Substance: INFLIXIMAB-DYYB
     Dosage: 400 MG (WEIGHT 80 KG)
     Route: 041
     Dates: start: 20190321, end: 20190321

REACTIONS (7)
  - Off label use [Unknown]
  - Gastritis haemorrhagic [Recovered/Resolved]
  - Gastroenteritis [Recovered/Resolved]
  - Upper respiratory tract infection [Recovered/Resolved]
  - Pharyngotonsillitis [Recovered/Resolved]
  - Bacterial prostatitis [Unknown]
  - Feeling cold [Not Recovered/Not Resolved]

NARRATIVE: CASE EVENT DATE: 20190109
